FAERS Safety Report 4683791-4 (Version None)
Quarter: 2005Q2

REPORT INFORMATION
  Report Type: 
  Country: None (occurrence: None)
  Receive Date: 20050602
  Receipt Date: 20050125
  Transmission Date: 20051028
  Serious: No
  Sender: FDA-Public Use
  Company Number: USA050189248

PATIENT
  Age: 49 Year
  Sex: Female
  Weight: 68 kg

DRUGS (6)
  1. CYMBALTA [Suspect]
     Indication: STRESS AT WORK
     Dosage: 60 MG DAY
     Dates: start: 20050125
  2. PAXIL CR (PARAXETINE HYDROCHLORIDE) [Concomitant]
  3. AMBIEN [Concomitant]
  4. AMLODIPINE BESYLATE W/BENAZEPRIL [Concomitant]
  5. XANAX (ALPRAZOLAM DUM) [Concomitant]
  6. ESTROSTEP [Concomitant]

REACTIONS (2)
  - FEELING JITTERY [None]
  - HEADACHE [None]
